FAERS Safety Report 5036575-1 (Version None)
Quarter: 2006Q2

REPORT INFORMATION
  Report Type: 
  Country: None (occurrence: None)
  Receive Date: 20060623
  Receipt Date: 20060613
  Transmission Date: 20061013
  Serious: Yes (Hospitalization)
  Sender: FDA-Public Use
  Company Number: 2006075806

PATIENT
  Sex: Male

DRUGS (1)
  1. XANAX [Suspect]
     Indication: ANXIETY DISORDER
     Dosage: 0.5 MG (0.125 MG, 4 IN 1 D), ORAL
     Route: 048

REACTIONS (3)
  - ARTHRALGIA [None]
  - BENIGN PROSTATIC HYPERPLASIA [None]
  - HYPOTONIA [None]
